FAERS Safety Report 7206050-4 (Version None)
Quarter: 2010Q4

REPORT INFORMATION
  Report Type: 
  Country: None (occurrence: None)
  Receive Date: 20101229
  Receipt Date: 20101229
  Transmission Date: 20110411
  Serious: Yes (Other)
  Sender: FDA-Public Use
  Company Number: None

PATIENT
  Age: 79 Year
  Sex: Female
  Weight: 101.6057 kg

DRUGS (1)
  1. GELNIQUE OXYBUTYNIN CHLORIDE 10% ONCE A DAY RUBBED ON BODY [Suspect]
     Indication: HYPERTONIC BLADDER
     Dosage: RUB ON BODY (ONCE) A DAY
     Dates: start: 20101001

REACTIONS (3)
  - DENTAL CARIES [None]
  - MUSCULOSKELETAL PAIN [None]
  - PAIN IN EXTREMITY [None]
